FAERS Safety Report 7388004-0 (Version None)
Quarter: 2011Q1

REPORT INFORMATION
  Report Type: 
  Country: None (occurrence: None)
  Receive Date: 20110322
  Receipt Date: 20110314
  Transmission Date: 20110831
  Serious: Yes (Death, Hospitalization)
  Sender: FDA-Public Use
  Company Number: 2011SP009993

PATIENT
  Age: 68 Year
  Weight: 53 kg

DRUGS (3)
  1. LEVETIRACETAM [Concomitant]
  2. DEXAMETHASONE [Concomitant]
  3. TEMODAL [Suspect]
     Indication: GLIOBLASTOMA
     Dosage: 130 MG, QD, PO
     Route: 048
     Dates: start: 20110115, end: 20110302

REACTIONS (9)
  - NEOPLASM MALIGNANT [None]
  - NEUROLOGICAL DECOMPENSATION [None]
  - URINARY TRACT INFECTION [None]
  - GLIOBLASTOMA [None]
  - NEUTROPENIA [None]
  - THROMBOCYTOPENIA [None]
  - MUSCULAR WEAKNESS [None]
  - HAEMOGLOBIN DECREASED [None]
  - APHASIA [None]
